FAERS Safety Report 8852527 (Version 2)
Quarter: 2015Q1

REPORT INFORMATION
  Report Type: Report from Study
  Country: US (occurrence: US)
  Receive Date: 20121022
  Receipt Date: 20150127
  Transmission Date: 20150721
  Serious: Yes (Death, Hospitalization)
  Sender: FDA-Public Use
  Company Number: US-ROCHE-1134105

PATIENT
  Sex: Male
  Weight: 95.34 kg

DRUGS (17)
  1. CYTOXAN [Concomitant]
     Active Substance: CYCLOPHOSPHAMIDE
  2. GAMMA GLOBULIN [Concomitant]
     Active Substance: IMMUNE GLOBULIN NOS
  3. TEQUIN [Concomitant]
     Active Substance: GATIFLOXACIN
  4. TYLENOL [Concomitant]
     Active Substance: ACETAMINOPHEN
     Route: 048
  5. IVIG [Concomitant]
     Active Substance: HUMAN IMMUNOGLOBULIN G
  6. NORVASC [Concomitant]
     Active Substance: AMLODIPINE BESYLATE
  7. PREDNISONE. [Concomitant]
     Active Substance: PREDNISONE
     Route: 065
  8. LEVAQUIN [Concomitant]
     Active Substance: LEVOFLOXACIN
  9. BACTRIM [Concomitant]
     Active Substance: SULFAMETHOXAZOLE\TRIMETHOPRIM
     Route: 065
  10. ALLOPURINOL. [Concomitant]
     Active Substance: ALLOPURINOL
     Route: 065
  11. LEUKERAN [Concomitant]
     Active Substance: CHLORAMBUCIL
  12. FLUDARABINE [Concomitant]
     Active Substance: FLUDARABINE PHOSPHATE
  13. ZANTAC [Concomitant]
     Active Substance: RANITIDINE HYDROCHLORIDE
  14. RITUXAN [Suspect]
     Active Substance: RITUXIMAB
     Indication: CHRONIC LYMPHOCYTIC LEUKAEMIA
     Route: 042
     Dates: start: 20010215
  15. PROCRIT [Concomitant]
     Active Substance: ERYTHROPOIETIN
     Route: 065
  16. RITUXAN [Suspect]
     Active Substance: RITUXIMAB
     Indication: HYPOGAMMAGLOBULINAEMIA
     Route: 042
  17. DANAZOL. [Concomitant]
     Active Substance: DANAZOL

REACTIONS (11)
  - Death [Fatal]
  - Off label use [Unknown]
  - Cough [Recovering/Resolving]
  - Asthenia [Unknown]
  - Spleen disorder [Unknown]
  - Ear haemorrhage [Unknown]
  - Bronchitis [Unknown]
  - Wheezing [Unknown]
  - Dyspnoea [Unknown]
  - Middle ear effusion [Unknown]
  - Contusion [Unknown]
